FAERS Safety Report 9983289 (Version 1)
Quarter: 2014Q1

REPORT INFORMATION
  Report Type: Spontaneous
  Country: US (occurrence: US)
  Receive Date: 20140307
  Receipt Date: 20140307
  Transmission Date: 20141002
  Serious: Yes (Other)
  Sender: FDA-Public Use
  Company Number: US-SA-2014SA028811

PATIENT
  Age: 77 Year
  Sex: Female

DRUGS (2)
  1. NASACORT ALLERGY 24 HR [Suspect]
     Indication: RHINORRHOEA
     Route: 065
  2. NASACORT ALLERGY [Suspect]
     Indication: MULTIPLE ALLERGIES
     Route: 065

REACTIONS (2)
  - Leukaemia [Unknown]
  - Glaucoma [Unknown]
